FAERS Safety Report 21000545 (Version 1)
Quarter: 2022Q2

REPORT INFORMATION
  Report Type: Spontaneous
  Country: FR (occurrence: FR)
  Receive Date: 20220623
  Receipt Date: 20220623
  Transmission Date: 20220721
  Serious: Yes (Hospitalization)
  Sender: FDA-Public Use
  Company Number: None

PATIENT
  Age: 68 Year
  Sex: Male
  Weight: 86 kg

DRUGS (10)
  1. PACLITAXEL [Suspect]
     Active Substance: PACLITAXEL
     Indication: Lung squamous cell carcinoma stage III
     Route: 042
     Dates: start: 20220509, end: 20220509
  2. CARBOPLATIN [Suspect]
     Active Substance: CARBOPLATIN
     Indication: Lung squamous cell carcinoma stage III
     Route: 042
     Dates: start: 20220509, end: 20220509
  3. SPIRIVA [Concomitant]
     Active Substance: TIOTROPIUM BROMIDE MONOHYDRATE
     Indication: Chronic obstructive pulmonary disease
     Dosage: POWDER FOR INHALATION IN CAPSULE FORM
     Route: 055
  4. COSIMPREL 5 mg/5 mg [Concomitant]
     Indication: Product used for unknown indication
     Dosage: 1 TABLET PER DAY?DIVISIBLE COATED TABLET
     Route: 048
  5. LIPTRUZET 10 mg/80 mg, [Concomitant]
     Indication: Product used for unknown indication
     Dosage: 1 TABLET PER DAY
     Route: 048
  6. AKYNZEO 300 mg [Concomitant]
     Indication: Prophylaxis of nausea and vomiting
  7. STRIVERDI RESPIMAT [Concomitant]
     Active Substance: OLODATEROL HYDROCHLORIDE
     Indication: Chronic obstructive pulmonary disease
     Dosage: MICROGRAMS/DOSE, SOLUTION FOR INHALATION
     Route: 055
  8. SOLUPRED [Concomitant]
     Indication: Product used for unknown indication
     Route: 048
  9. EMLAPATCH 5 Percent [Concomitant]
     Indication: Local anaesthesia
     Dosage: SKIN ADHESIVE DRESSING
  10. KARDEGIC [Concomitant]
     Active Substance: ASPIRIN DL-LYSINE
     Indication: Product used for unknown indication
     Dosage: POWDER FOR ORAL SOLUTION IN SACHET-DOSE
     Route: 048

REACTIONS (1)
  - Rhabdomyolysis [Recovering/Resolving]

NARRATIVE: CASE EVENT DATE: 20220510
